FAERS Safety Report 6533519-8 (Version None)
Quarter: 2010Q1

REPORT INFORMATION
  Report Type: 
  Country: None (occurrence: None)
  Receive Date: 20100108
  Receipt Date: 20100108
  Transmission Date: 20100710
  Serious: No
  Sender: FDA-Public Use
  Company Number: None

PATIENT
  Age: 56 Year
  Sex: Male
  Weight: 86.637 kg

DRUGS (1)
  1. ZICAM NASAL GEL PUMP N. A. ZICAM, GEL TECH [Suspect]
     Indication: NASOPHARYNGITIS
     Dosage: 1 SPRAY INTO EACH NOSTRIL EVERY 2-4 HOURS NASAL
     Route: 045
     Dates: start: 20000101, end: 20000101

REACTIONS (3)
  - ANOSMIA [None]
  - HYPOSMIA [None]
  - NASAL DISCOMFORT [None]
